FAERS Safety Report 24344497 (Version 1)
Quarter: 2024Q3

REPORT INFORMATION
  Report Type: Spontaneous
  Country: US (occurrence: US)
  Receive Date: 20240920
  Receipt Date: 20240920
  Transmission Date: 20241017
  Serious: No
  Sender: BAYER
  Company Number: US-BAYER-2024A134147

PATIENT
  Age: 61 Year
  Sex: Male
  Weight: 71.09 kg

DRUGS (2)
  1. CLARITIN [Suspect]
     Active Substance: LORATADINE
     Indication: Seasonal allergy
     Route: 065
  2. BRUKINSA [Suspect]
     Active Substance: ZANUBRUTINIB
     Dosage: 80 MG, BID
     Route: 048
     Dates: start: 20240804

REACTIONS (5)
  - Abdominal discomfort [Recovered/Resolved]
  - Joint swelling [Unknown]
  - Diarrhoea [Unknown]
  - Seasonal allergy [Unknown]
  - Middle insomnia [Unknown]
